FAERS Safety Report 16092388 (Version 3)
Quarter: 2019Q2

REPORT INFORMATION
  Report Type: Report from Study
  Country: US (occurrence: US)
  Receive Date: 20190319
  Receipt Date: 20190509
  Transmission Date: 20190711
  Serious: Yes (Other)
  Sender: FDA-Public Use
  Company Number: US-EXELIXIS-XL18419019436

PATIENT
  Age: 91 Year
  Sex: Male
  Weight: 80.7 kg

DRUGS (9)
  1. LUPRON [Concomitant]
     Active Substance: LEUPROLIDE ACETATE
  2. DEXLANSOPRAZOLE [Concomitant]
     Active Substance: DEXLANSOPRAZOLE
  3. OXYBUTYNIN. [Concomitant]
     Active Substance: OXYBUTYNIN CHLORIDE
  4. ATEZOLIZUMAB. [Suspect]
     Active Substance: ATEZOLIZUMAB
     Indication: HORMONE-REFRACTORY PROSTATE CANCER
     Dosage: 1200 MG, Q3WEEKS
     Route: 042
     Dates: start: 20180523
  5. CALCIUM CITRATE [Concomitant]
     Active Substance: CALCIUM CITRATE
  6. XL184 [Suspect]
     Active Substance: CABOZANTINIB
     Indication: HORMONE-REFRACTORY PROSTATE CANCER
     Dosage: 40 MG, QD
     Route: 048
     Dates: start: 20180523, end: 20180629
  7. NASONEX [Concomitant]
     Active Substance: MOMETASONE FUROATE
  8. MULTIVITAMIN [Concomitant]
     Active Substance: VITAMINS
  9. MYRBETRIQ [Concomitant]
     Active Substance: MIRABEGRON

REACTIONS (1)
  - Aortic dissection [Not Recovered/Not Resolved]

NARRATIVE: CASE EVENT DATE: 20180629
